FAERS Safety Report 13458135 (Version 7)
Quarter: 2017Q2

REPORT INFORMATION
  Report Type: Report from Study
  Country: CN (occurrence: CN)
  Receive Date: 20170419
  Receipt Date: 20170623
  Transmission Date: 20170830
  Serious: Yes (Hospitalization)
  Sender: FDA-Public Use
  Company Number: CN-AMGEN-CHNCT2017058787

PATIENT
  Age: 71 Year
  Sex: Female
  Weight: 51.5 kg

DRUGS (14)
  1. ALLOPURINOL. [Concomitant]
     Active Substance: ALLOPURINOL
     Dosage: 0.1 G, UNK
     Route: 048
     Dates: start: 20170331
  2. MECOBALAMIN [Concomitant]
     Active Substance: METHYLCOBALAMIN
     Dosage: 500 MUG, UNK
     Route: 048
     Dates: start: 20170412, end: 20170416
  3. FOLIC ACID. [Concomitant]
     Active Substance: FOLIC ACID
     Dosage: 5 MUG AND 5 MG, UNK
     Route: 048
     Dates: start: 20170406, end: 20170416
  4. CALCIUM CARBONATE. [Concomitant]
     Active Substance: CALCIUM CARBONATE
     Dosage: 0.5 G, UNK
     Route: 048
     Dates: start: 20170323
  5. AMLODIPINE BESYLATE. [Concomitant]
     Active Substance: AMLODIPINE BESYLATE
     Dosage: 2.5 MUG, UNK
     Route: 048
     Dates: start: 2014
  6. SODIUM CHLORIDE. [Concomitant]
     Active Substance: SODIUM CHLORIDE
     Dosage: 250-500 ML, UNK
     Dates: start: 20170331, end: 20170415
  7. CALCITRIOL. [Concomitant]
     Active Substance: CALCITRIOL
     Dosage: 0.25 UNK, UNK
     Route: 048
     Dates: start: 20170323
  8. CARFILZOMIB [Suspect]
     Active Substance: CARFILZOMIB
     Indication: PLASMA CELL MYELOMA
     Dosage: 30 MG, PER CHEMO REGIM
     Route: 042
     Dates: start: 20170331
  9. CARFILZOMIB [Suspect]
     Active Substance: CARFILZOMIB
     Dosage: 41 MG, PER CHEMO REGIM
     Route: 042
  10. PAMIDRONATE DISODIUM. [Concomitant]
     Active Substance: PAMIDRONATE DISODIUM
     Dosage: 60 MG, UNK
     Route: 042
     Dates: start: 20170331, end: 20170331
  11. ACICLOVIR [Concomitant]
     Active Substance: ACYCLOVIR
     Dosage: 0.4 G, UNK
     Route: 048
     Dates: start: 20170330
  12. SODIUM BICARBONATE. [Concomitant]
     Active Substance: SODIUM BICARBONATE
     Dosage: 0.5 G, UNK
     Route: 048
     Dates: start: 20170331
  13. DEXAMETHASONE. [Suspect]
     Active Substance: DEXAMETHASONE
     Indication: PLASMA CELL MYELOMA
     Dosage: UNK UNK, PER CHEMO REGIM
     Route: 065
     Dates: start: 20170331
  14. OMEPRAZOLE. [Concomitant]
     Active Substance: OMEPRAZOLE
     Dosage: 40 MUG, UNK
     Route: 042
     Dates: start: 20170406, end: 20170407

REACTIONS (1)
  - Organising pneumonia [Recovered/Resolved]

NARRATIVE: CASE EVENT DATE: 20170413
